FAERS Safety Report 5882904-6 (Version None)
Quarter: 2008Q3

REPORT INFORMATION
  Report Type: 
  Country: None (occurrence: None)
  Receive Date: 20080913
  Receipt Date: 20080826
  Transmission Date: 20090109
  Serious: No
  Sender: FDA-Public Use
  Company Number: US-ABBOTT-08P-163-0471979-00

PATIENT
  Sex: Male
  Weight: 97 kg

DRUGS (3)
  1. HUMIRA [Suspect]
     Indication: PSORIATIC ARTHROPATHY
     Dates: end: 20080501
  2. HUMIRA [Suspect]
     Indication: PSORIASIS
     Dates: start: 20080801
  3. EFALIZUMAB [Concomitant]
     Indication: PSORIATIC ARTHROPATHY
     Dates: start: 20080101, end: 20080501

REACTIONS (1)
  - PARKINSON'S DISEASE [None]
